FAERS Safety Report 23207750 (Version 1)
Quarter: 2023Q4

REPORT INFORMATION
  Report Type: Spontaneous
  Country: GB (occurrence: GB)
  Receive Date: 20231121
  Receipt Date: 20231121
  Transmission Date: 20240110
  Serious: Yes (Hospitalization)
  Sender: FDA-Public Use
  Company Number: None

PATIENT
  Age: 93 Year
  Sex: Female

DRUGS (19)
  1. DAPTOMYCIN [Suspect]
     Active Substance: DAPTOMYCIN
     Indication: Product used for unknown indication
  2. SERTRALINE [Concomitant]
     Active Substance: SERTRALINE HYDROCHLORIDE
     Indication: Product used for unknown indication
     Dosage: TABLET SERTRALINE 100MG TABLETS, TWO TO BE TAKEN EACH MORNING
  3. NITROGLYCERIN [Concomitant]
     Active Substance: NITROGLYCERIN
     Indication: Product used for unknown indication
     Dosage: GLYCERYL TRINITRATE 400MICROGRAMS/DOSE PUMP SUBLINGUAL SPRAY, SPRAY ONE OR TWO DOSES UNDER TONGUE AN
  4. Altrajuce [Concomitant]
     Indication: Product used for unknown indication
     Dosage: ALTRAJUCE LIQUID (FLAVOUR NOT SPECIFIED), 1 CARTON PER ?DAY AS PER DIETICIAN,56 X 200 ML - TAKING 03
     Dates: start: 20230322
  5. SPIKEVAX (ELASOMERAN) [Concomitant]
     Active Substance: ELASOMERAN
     Indication: COVID-19 immunisation
     Dosage: COVID-19 VACCINE SPIKEVAX 0 (ZERO)/O (OMICRON) 0.1MG/ML DISPERSION FOR INJECTION MULTIDOSE VIALS (M
     Route: 030
     Dates: start: 20221003
  6. SPIKEVAX (ELASOMERAN) [Concomitant]
     Active Substance: ELASOMERAN
     Indication: COVID-19 immunisation
     Dosage: 21-APR-2022 SPIKEVAX COVID-19 MRNA (NUCLEOSIDE MODIFIED) VACCINE 0.1MG/0.5ML DOSE DISPERSION FOR IN
     Route: 030
     Dates: start: 20220421
  7. SPIRONOLACTONE [Concomitant]
     Active Substance: SPIRONOLACTONE
     Indication: Product used for unknown indication
     Dosage: SPIRONOLACTONE 25MG TABLETS, HALF A TABLET TO BE TAKEN IN THE MORNING
     Dates: start: 20230309
  8. ACETAMINOPHEN [Concomitant]
     Active Substance: ACETAMINOPHEN
     Indication: Product used for unknown indication
     Dosage: ,1 X 180 ?DOSE PARACETAMOL 500MG TABLETS, TWO TO BE TAKEN EVERY 4-6 HOURS FOUR TIMES A DAY
  9. HYDROXOCOBALAMIN [Concomitant]
     Active Substance: HYDROXOCOBALAMIN
     Indication: Product used for unknown indication
     Dosage: HYDROXOCOBALAMIN 1MG/1ML SOLUTION FOR INJECTION AMP?OULES, USE AS DIRECTED,1 AMPOUL
  10. DUE LAXIDO [Concomitant]
     Indication: Constipation
     Dosage: DUE LAXIDO ORANGE ORAL POWDER SACHETS SUGAR FREE DISSOLVE CONTENTS OF ONE SACHET IN HALF A GLASS (12
  11. SENNA [Concomitant]
     Active Substance: SENNA LEAF\SENNOSIDES\SENNOSIDES A AND B
     Indication: Product used for unknown indication
     Dosage: SENNA 7.5MG TABLETS, TWO TO BE TAKEN AT NIGHT WHEN REQUIRED ,
  12. BRINZOLAMIDE [Concomitant]
     Active Substance: BRINZOLAMIDE
     Indication: Product used for unknown indication
     Dosage: 10MG/ML EYE DROPS, ONE DROP TO BE USED TWICE A DAY IN BOTH EYES,
  13. CLOPIDOGREL [Concomitant]
     Active Substance: CLOPIDOGREL BISULFATE
     Indication: Product used for unknown indication
     Dosage: CLOPIDOGREL 75MG TABLETS, ONE TO BE TAKEN EACH DAY,28 TABLET
  14. ISOSORBIDE MONONITRATE [Concomitant]
     Active Substance: ISOSORBIDE MONONITRATE
     Indication: Product used for unknown indication
     Dosage: ISOSORBIDE MONON?ITRATE 10MG TABLETS, ONE TO BE TAKEN TWICE A DAY,56 TABLET
  15. LEVOTHYROXINE SODIUM [Concomitant]
     Active Substance: LEVOTHYROXINE SODIUM
     Indication: Product used for unknown indication
     Dosage: LEVOTHYROXINE SODIUM 50MICROGRAM TABLETS, ONE TO BE TAKEN DAILY,28 TABLE
  16. NICORANDIL [Concomitant]
     Active Substance: NICORANDIL
     Indication: Product used for unknown indication
     Dosage: NICORANDIL 20MG TAB?LETS, ONE TO BE TAKEN TWICE A DAY,56
  17. CALCIUM CARBONATE\CHOLECALCIFEROL [Concomitant]
     Active Substance: CALCIUM CARBONATE\CHOLECALCIFEROL
     Indication: Product used for unknown indication
     Dosage: ADCAL-D3 CHEWABLE TABLETS TUTTI FRUTTI TWO CHE?WABLE TABLETS PER DAY, PREFERABLY ONE TABLET EACH MOR
  18. LATANOPROST [Concomitant]
     Active Substance: LATANOPROST
     Indication: Product used for unknown indication
     Dosage: LATANOPROST 50MICROGRAMS/ML EYE DROPS, ONE DROP TO BE USED AT NIGHT IN? BOTH EYE(S),5 M
  19. LANSOPRAZOLE [Concomitant]
     Active Substance: LANSOPRAZOLE
     Indication: Product used for unknown indication
     Dosage: LANSOPRAZOLE 30MG GASTRO-RESISTANT CAPSULES, ONE TO BE TAKEN EACH MORNING,28 CAPSULE

REACTIONS (1)
  - Neutropenia [Recovered/Resolved]
